FAERS Safety Report 9759824 (Version 1)
Quarter: 2013Q4

REPORT INFORMATION
  Report Type: Spontaneous
  Country: GB (occurrence: GB)
  Receive Date: 20131216
  Receipt Date: 20131216
  Transmission Date: 20140711
  Serious: Yes (Other)
  Sender: FDA-Public Use
  Company Number: GB-PFIZER INC-2013354587

PATIENT
  Age: 50 Year
  Sex: Female

DRUGS (1)
  1. TOVIAZ [Suspect]
     Dosage: 8 MG, UNK

REACTIONS (2)
  - Urinary retention [Unknown]
  - Bladder disorder [Unknown]
